FAERS Safety Report 23488677 (Version 1)
Quarter: 2024Q1

REPORT INFORMATION
  Report Type: Spontaneous
  Country: US (occurrence: None)
  Receive Date: 20240206
  Receipt Date: 20240206
  Transmission Date: 20240410
  Serious: Yes (Hospitalization)
  Sender: FDA-Public Use
  Company Number: None

PATIENT
  Age: 65 Year
  Sex: Female
  Weight: 95.25 kg

DRUGS (1)
  1. SULFASALAZINE [Suspect]
     Active Substance: SULFASALAZINE

REACTIONS (16)
  - Urinary tract pain [None]
  - Pollakiuria [None]
  - Urinary tract infection [None]
  - Urinary incontinence [None]
  - Quality of life decreased [None]
  - Joint swelling [None]
  - Headache [None]
  - Nausea [None]
  - Fatigue [None]
  - Taste disorder [None]
  - Decreased appetite [None]
  - Sepsis [None]
  - Febrile neutropenia [None]
  - Acute kidney injury [None]
  - Pancytopenia [None]
  - Agranulocytosis [None]

NARRATIVE: CASE EVENT DATE: 20210319
